FAERS Safety Report 9234099 (Version 1)
Quarter: 2013Q2

REPORT INFORMATION
  Report Type: Spontaneous
  Country: US (occurrence: US)
  Receive Date: 20130416
  Receipt Date: 20130416
  Transmission Date: 20140414
  Serious: No
  Sender: FDA-Public Use
  Company Number: US-BAYER-2013-047407

PATIENT
  Age: 83 Year
  Sex: Female
  Weight: 86.17 kg

DRUGS (2)
  1. ALEVE CAPLET [Suspect]
     Indication: ARTHRITIS
     Dosage: 2 DF, PRN
     Route: 048
     Dates: start: 201303
  2. LORAZEPAM [Concomitant]

REACTIONS (2)
  - Incorrect drug administration duration [None]
  - Insomnia [Recovered/Resolved]
